FAERS Safety Report 10095609 (Version 1)
Quarter: 2014Q2

REPORT INFORMATION
  Report Type: Spontaneous
  Country: DE (occurrence: DE)
  Receive Date: 20140422
  Receipt Date: 20140422
  Transmission Date: 20141212
  Serious: Yes (Congenital Anomaly)
  Sender: FDA-Public Use
  Company Number: DE-TEVA-477179GER

PATIENT
  Age: 0 Year
  Sex: 0

DRUGS (4)
  1. CITALOPRAM [Suspect]
     Route: 064
  2. IMPFSTOFF GRIPPE (SAISONALE) [Suspect]
     Route: 064
  3. L-THYROXIN [Concomitant]
     Route: 064
  4. FOLS?URE [Concomitant]
     Route: 064

REACTIONS (1)
  - Deafness [Unknown]
